FAERS Safety Report 8243679 (Version 14)
Quarter: 2014Q4

REPORT INFORMATION
  Report Type: Report from Study
  Country: IN (occurrence: IN)
  Receive Date: 20111114
  Receipt Date: 20141128
  Transmission Date: 20150529
  Serious: Yes (Life-Threatening, Hospitalization)
  Sender: FDA-Public Use
  Company Number: IN-B.I. PHARMACEUTICALS,INC./RIDGEFIELD-2011-BP-25719BP

PATIENT
  Age: 31 Year
  Sex: Male
  Weight: 47 kg

DRUGS (98)
  1. VIRAMUNE [Suspect]
     Active Substance: NEVIRAPINE
     Dosage: 400 MG
     Route: 048
     Dates: start: 20110203
  2. EMTRICITABINE/TENOFOVIR DISOPROXIL FUMARATE [Suspect]
     Active Substance: EMTRICITABINE\TENOFOVIR DISOPROXIL
     Route: 065
     Dates: start: 20131204, end: 20140513
  3. ONDANSETRON [Suspect]
     Active Substance: ONDANSETRON
     Dosage: FORMULATION: INJ AMP
     Route: 065
     Dates: start: 20140317, end: 20140323
  4. ATAZANAVIR [Suspect]
     Active Substance: ATAZANAVIR
     Indication: HIV INFECTION
     Dosage: 300 MG
     Route: 065
     Dates: start: 20140513
  5. ANTISNAKE VENOM [Concomitant]
     Dosage: FORMULATION-INJECTION, DOSE- 120 CC STAT
     Route: 065
     Dates: start: 20140317, end: 20140317
  6. AL(OH)3 [Concomitant]
     Indication: EPIGASTRIC DISCOMFORT
     Route: 065
     Dates: start: 20080204
  7. WARFARIN [Concomitant]
     Active Substance: WARFARIN
     Indication: DEEP VEIN THROMBOSIS
     Route: 065
     Dates: start: 20140323, end: 20140514
  8. CALCIUM +VITAMIN D3 [Concomitant]
     Indication: ROUTINE HEALTH MAINTENANCE
     Dosage: DOSE PER APPLICATION: 500 MG+250 IU
     Route: 065
     Dates: start: 20140513, end: 20140712
  9. FRESH FROZEN PLASMA [Concomitant]
     Active Substance: HUMAN PLASMA
     Indication: INTERNATIONAL NORMALISED RATIO INCREASED
     Dosage: FORMULATION: INJECTION; DOSE PER APPLICATION: 4 UNITS
     Route: 065
     Dates: start: 20140514, end: 20140514
  10. MIRTAZAPINE. [Concomitant]
     Active Substance: MIRTAZAPINE
     Indication: ADJUSTMENT DISORDER
     Dosage: 7.5 MG
     Route: 048
     Dates: start: 20111107, end: 201203
  11. VENLAFAXINE [Concomitant]
     Active Substance: VENLAFAXINE HYDROCHLORIDE
     Indication: DEPRESSION
     Route: 065
     Dates: start: 20111229, end: 201303
  12. AMOXYCILLIN + CLAVULANIC ACID [Concomitant]
     Indication: COUGH
     Dosage: DOSE PER APPLICATION: 500 MG + 125 MG
     Route: 065
     Dates: start: 20120329, end: 20120401
  13. CEFTRIAXONE. [Concomitant]
     Active Substance: CEFTRIAXONE
     Indication: PROPHYLAXIS
     Dosage: FORMULATION: INJECTION
     Route: 065
     Dates: start: 20130719, end: 20130720
  14. DICLOFENAC SODIUM. [Concomitant]
     Active Substance: DICLOFENAC SODIUM
     Indication: BACK PAIN
     Dosage: 100 MG
     Route: 048
     Dates: end: 20110904
  15. CALCIUM CARBONATE+VITAMIN D3 [Concomitant]
     Indication: OSTEOPOROSIS PROPHYLAXIS
  16. TOBRAMYCIN. [Concomitant]
     Active Substance: TOBRAMYCIN
     Indication: EYE SWELLING
  17. MOXIFLOXACIN [Concomitant]
     Active Substance: MOXIFLOXACIN
     Indication: OCULAR HYPERAEMIA
     Dosage: FORMULATION: EYE DROP
     Route: 065
     Dates: start: 20120906
  18. MG(OH)2 [Concomitant]
     Indication: EPIGASTRIC DISCOMFORT
     Dosage: DOSE PER APPLICATION: 98 MG / 5ML
     Route: 065
     Dates: start: 20080204
  19. WARFARIN [Concomitant]
     Active Substance: WARFARIN
     Route: 065
     Dates: start: 20140515
  20. MULTIVITAMIN [Concomitant]
     Active Substance: VITAMINS
     Route: 048
     Dates: start: 20110821
  21. FLUVOXAMINE MALEATE. [Concomitant]
     Active Substance: FLUVOXAMINE MALEATE
     Indication: DEPRESSION
     Route: 065
     Dates: start: 20120315, end: 20130228
  22. CHLORZOXAZONE+DICLOFENAC+PARACETAMOL [Concomitant]
     Indication: MUSCLE SPASMS
     Dosage: DOSE PER APPLICATION: 500MG+50MG+325MG
     Route: 065
     Dates: start: 20120426, end: 20120502
  23. RITONAVIR. [Suspect]
     Active Substance: RITONAVIR
     Indication: HIV INFECTION
     Dosage: 100 MG
     Route: 065
     Dates: start: 20140513
  24. AL(OH)3 [Concomitant]
     Indication: NAUSEA
  25. CETRIZINE [Concomitant]
     Active Substance: CETIRIZINE HYDROCHLORIDE
     Indication: RHINORRHOEA
     Dosage: 10 MG
     Route: 065
     Dates: start: 20120209, end: 20120213
  26. CETRIZINE [Concomitant]
     Active Substance: CETIRIZINE HYDROCHLORIDE
     Dosage: 10 MG
     Route: 065
     Dates: start: 20111215, end: 20111217
  27. MULTIVITAMIN [Concomitant]
     Active Substance: VITAMINS
     Indication: ROUTINE HEALTH MAINTENANCE
     Route: 065
     Dates: start: 20140320, end: 20140331
  28. FRESH FROZEN PLASMA [Concomitant]
     Active Substance: HUMAN PLASMA
     Indication: PROTHROMBIN TIME PROLONGED
  29. PANTOPRAZOLE [Concomitant]
     Active Substance: PANTOPRAZOLE SODIUM
     Indication: GASTRITIS PROPHYLAXIS
     Dosage: FORMULATION: INJECTION
     Route: 065
     Dates: start: 20140317, end: 20140323
  30. MIRTAZAPINE. [Concomitant]
     Active Substance: MIRTAZAPINE
     Indication: DEPRESSION
     Route: 048
     Dates: end: 201109
  31. RISPERIDONE. [Concomitant]
     Active Substance: RISPERIDONE
     Indication: PSYCHOTIC DISORDER
     Dosage: 2 MG
     Route: 065
     Dates: start: 20130131, end: 20130923
  32. RISPERIDONE + THP [Concomitant]
     Dosage: DOSE PER APPLICATION AND DAILY DOSE: 2 MG + 2 MG
     Route: 065
     Dates: start: 20120220, end: 20120314
  33. RANITIDINE HYDROCHLORIDE. [Concomitant]
     Active Substance: RANITIDINE HYDROCHLORIDE
     Indication: GASTRITIS
  34. LACTULOSE. [Concomitant]
     Active Substance: LACTULOSE
     Indication: CONSTIPATION
     Route: 065
     Dates: start: 20130724, end: 20130727
  35. TOBRAMYCIN. [Concomitant]
     Active Substance: TOBRAMYCIN
     Indication: OCULAR HYPERAEMIA
     Dosage: FORMULATION: EYE DROP
     Route: 065
     Dates: start: 20120906
  36. MODAFINIL. [Concomitant]
     Active Substance: MODAFINIL
     Indication: ELEVATED MOOD
     Route: 065
     Dates: start: 20120906, end: 20121004
  37. VIRAMUNE [Suspect]
     Active Substance: NEVIRAPINE
     Indication: HIV INFECTION
     Dosage: 200 MG
     Route: 048
     Dates: start: 20110120, end: 20110202
  38. ANTISNAKE VENOM [Concomitant]
     Dosage: FORMULATION-INJECTION, DOSE- 20 CC
     Route: 065
     Dates: start: 20140317, end: 20140318
  39. OXETHAZAINE [Concomitant]
     Active Substance: OXETHAZAINE
     Indication: EPIGASTRIC DISCOMFORT
     Route: 065
     Dates: start: 20080204
  40. ENOXAPARIN [Concomitant]
     Active Substance: ENOXAPARIN
     Indication: SNAKE BITE
     Dosage: FORMULATION: INJECTION; DOSE PER APPLICATION: 0.6 CC
     Route: 065
     Dates: start: 20140318, end: 20140323
  41. VITAMIN K [Concomitant]
     Active Substance: PHYTONADIONE
     Indication: PROTHROMBIN TIME PROLONGED
  42. ECITALOPRAM [Concomitant]
     Indication: ADJUSTMENT DISORDER
     Dosage: 20 MG
     Route: 048
     Dates: end: 20110901
  43. POVIDONE IODINE [Concomitant]
     Active Substance: POVIDONE-IODINE
     Indication: OROPHARYNGEAL PAIN
     Dosage: FORMULATION: GARGLE
     Route: 065
     Dates: start: 20111104, end: 20111107
  44. CHLORPHENIRAMINE MALEATE+ PHENYL HCL+ PARACETAMOL [Concomitant]
     Indication: COUGH
     Dosage: DOSE PER APPLICATION: 2 MGG+ 10MG + 500 MG
     Route: 065
     Dates: start: 20111105, end: 20111107
  45. DEXTROMETHORPHAN HYDROBROMIDE+TRIPROLIDINE HCL PHENYLEPHRINE HCL [Concomitant]
     Indication: COUGH
     Dosage: DOSE PER APPLICATION : 10 MG + 1.25 MG + 5 MG
     Route: 065
     Dates: start: 20111105, end: 20111107
  46. DICLOFENAC SODIUM. [Concomitant]
     Active Substance: DICLOFENAC SODIUM
     Indication: PAIN
     Dosage: 100 MG
     Route: 065
     Dates: start: 20131204, end: 20131206
  47. FOLIC ACID+METHYLCOBALAMIN+PYRIDOXINE [Concomitant]
     Indication: HOMOCYSTINAEMIA
     Dosage: DOSE PER APPLICATION: 1MG+400MCG+10MG
     Route: 065
     Dates: start: 20140320
  48. PANTOPRAZOLE+DOMPERIDONE [Concomitant]
     Indication: PROPHYLAXIS
     Dosage: DOSE PER APPLICATION: 40MG+30MG
     Route: 065
     Dates: start: 20120626, end: 20120804
  49. PROMETHAZINE [Concomitant]
     Active Substance: PROMETHAZINE\PROMETHAZINE HYDROCHLORIDE
     Indication: PRODUCT USED FOR UNKNOWN INDICATION
     Dosage: 25 MG
     Route: 065
     Dates: start: 20120525, end: 20120625
  50. CIPROFLOXACIN. [Suspect]
     Active Substance: CIPROFLOXACIN
     Indication: PROPHYLAXIS URINARY TRACT INFECTION
     Dosage: FORMULATION: INJ
     Route: 065
     Dates: start: 20090422, end: 20090423
  51. RANITIDINE [Concomitant]
     Active Substance: RANITIDINE\RANITIDINE HYDROCHLORIDE
     Indication: NAUSEA
  52. BROMELAIN + TRYPSIN + RUTOSIDE TRIHYDRATE [Concomitant]
     Indication: SNAKE BITE
     Dosage: DOSE PER APPLICATION: 90 MG + 48 MG+ 100 MG
     Route: 065
     Dates: start: 20140317, end: 20140331
  53. IV FLUIDS [Concomitant]
     Active Substance: UNSPECIFIED INGREDIENT
     Indication: SNAKE BITE
     Route: 042
     Dates: start: 20140317, end: 20140323
  54. CHLORPHENIRAMINE MALEATE+ PHENYL HCL+ PARACETAMOL [Concomitant]
     Indication: NASOPHARYNGITIS
  55. FLUVOXAMINE MALEATE. [Concomitant]
     Active Substance: FLUVOXAMINE MALEATE
     Dosage: 100 MG
     Route: 065
     Dates: start: 20130228, end: 20140308
  56. DOPAROL [Concomitant]
     Indication: DEPRESSION
     Dosage: 20 MG
     Route: 065
     Dates: start: 20120315, end: 20120330
  57. CALCIUM CARBONATE+VITAMIN D3 [Concomitant]
     Indication: ROUTINE HEALTH MAINTENANCE
     Dosage: DOSE PER APPLICATION: 1250MG+250IU
     Route: 065
     Dates: start: 20140120, end: 20140219
  58. MOXIFLOXACIN [Concomitant]
     Active Substance: MOXIFLOXACIN
     Indication: EYE SWELLING
  59. PARACETAMOL [Concomitant]
     Active Substance: ACETAMINOPHEN
     Indication: HEAD DISCOMFORT
     Dosage: 1000 MG
     Route: 048
     Dates: end: 20110901
  60. OXETHAZAINE [Concomitant]
     Active Substance: OXETHAZAINE
     Indication: NAUSEA
  61. MG(OH)2 [Concomitant]
     Indication: NAUSEA
  62. PROTEIN HYDROLYSATE [Concomitant]
     Active Substance: PROTEIN HYDROLYSATE
     Indication: ROUTINE HEALTH MAINTENANCE
     Route: 065
     Dates: start: 20080522
  63. AMOXICILLIN + CLAVULANIC ACID [Concomitant]
     Active Substance: AMOXICILLIN\CLAVULANIC ACID
     Indication: ANTIINFLAMMATORY THERAPY
     Dosage: FORMULATION INJECTION
     Route: 065
     Dates: start: 20140317, end: 20140323
  64. AMOXICILLIN + CLAVULANIC ACID [Concomitant]
     Active Substance: AMOXICILLIN\CLAVULANIC ACID
     Indication: INFECTION PROPHYLAXIS
     Dosage: DOSE PER APPLICATION:-500 MG+ 125 MG
     Route: 065
     Dates: start: 20140323, end: 20140331
  65. VITAMIN A + VITAMIN D + VITAMIN B1 [Concomitant]
     Indication: ASTHENIA
     Dosage: DOSE PER APPLICATION: 10000 IU+1000 IU+10 MG
     Route: 065
     Dates: start: 20140513, end: 20140712
  66. LEVOCETIRIZINE [Concomitant]
     Active Substance: LEVOCETIRIZINE
     Indication: PRURITUS
     Route: 065
     Dates: start: 20140423, end: 20140427
  67. MICONAZOLE [Concomitant]
     Active Substance: MICONAZOLE
     Indication: GENITAL DISCHARGE
     Dosage: FORMULATION-OINTMENT
     Route: 065
     Dates: start: 20140423, end: 20140427
  68. ECITALOPRAM [Concomitant]
     Indication: ANTIDEPRESSANT THERAPY
     Dosage: 20 MG
     Route: 065
     Dates: start: 20120113, end: 20120211
  69. VITAMIN A + VITAMIN D3+ VITAMIN E [Concomitant]
     Indication: ROUTINE HEALTH MAINTENANCE
     Dosage: DOSE PER APPLICATION: 5000 IU+400 IU + 15 MG
     Route: 065
     Dates: start: 20111110, end: 20111229
  70. EMTRICITABINE/TENOFOVIR DISOPROXIL FUMARATE [Suspect]
     Active Substance: EMTRICITABINE\TENOFOVIR DISOPROXIL
     Indication: HIV INFECTION
     Dosage: DOSE PER APPLICATION: 200 MG/300 MG
     Route: 048
     Dates: start: 20110120, end: 20111028
  71. RANITIDINE HCL [Suspect]
     Active Substance: RANITIDINE HYDROCHLORIDE
     Indication: GASTRITIS
     Dosage: FORMULATION: INJ AMP
     Route: 065
     Dates: start: 20090422, end: 20090422
  72. ONDANSETRON [Suspect]
     Active Substance: ONDANSETRON
     Indication: GASTRITIS
     Dosage: FORMULATION: INJ AMP
     Route: 065
     Dates: start: 20090422, end: 20090422
  73. OXETHAZAINE [Concomitant]
     Active Substance: OXETHAZAINE
     Indication: CHEST PAIN
  74. MG(OH)2 [Concomitant]
     Indication: CHEST PAIN
  75. RANITIDINE [Concomitant]
     Active Substance: RANITIDINE\RANITIDINE HYDROCHLORIDE
     Indication: EPIGASTRIC DISCOMFORT
     Route: 065
     Dates: start: 20080204
  76. VIT A [Concomitant]
     Indication: ROUTINE HEALTH MAINTENANCE
     Route: 065
     Dates: start: 20080522
  77. CETRIZINE [Concomitant]
     Active Substance: CETIRIZINE HYDROCHLORIDE
     Indication: SNAKE BITE
     Route: 065
     Dates: start: 20140318, end: 20140331
  78. CETRIZINE [Concomitant]
     Active Substance: CETIRIZINE HYDROCHLORIDE
     Indication: PRODUCTIVE COUGH
     Dosage: 10 MG
     Route: 065
     Dates: start: 20130131, end: 20130206
  79. VITAMIN K [Concomitant]
     Active Substance: PHYTONADIONE
     Indication: INTERNATIONAL NORMALISED RATIO INCREASED
     Dosage: FORMULATION: INJECTION
     Route: 065
     Dates: start: 20140514, end: 20140514
  80. THIAMINE MONONITRATE + RIBOFLAVIN + PYRIDOXINE [Concomitant]
     Indication: ROUTINE HEALTH MAINTENANCE
     Dosage: DOSE-10 MG+ 10 MG+ 3 MG
     Route: 065
     Dates: start: 20140219, end: 20140305
  81. LORAZEPAM. [Concomitant]
     Active Substance: LORAZEPAM
     Indication: DEPRESSION
     Dosage: FORMULATION: INJECTION
     Route: 065
     Dates: start: 20111101, end: 20111107
  82. RISPERIDONE. [Concomitant]
     Active Substance: RISPERIDONE
     Dosage: 2 MG
     Route: 065
     Dates: start: 20130926, end: 20131005
  83. RISPERIDONE + THP [Concomitant]
     Indication: PSYCHOTIC DISORDER
     Dosage: DOSE PER APPLICATION AND DAILY DOSE: 2 MG + 2 MG
     Route: 065
     Dates: start: 20121227, end: 20130131
  84. DULOXETINE [Concomitant]
     Active Substance: DULOXETINE
     Indication: ANTIDEPRESSANT THERAPY
     Dosage: 30 MG
     Route: 065
     Dates: start: 20120809, end: 20120906
  85. RANITIDINE HYDROCHLORIDE. [Concomitant]
     Active Substance: RANITIDINE HYDROCHLORIDE
     Indication: DYSPEPSIA
     Dosage: 300 MG
     Route: 048
     Dates: end: 20110904
  86. DIPHENHYDRAMINE+AMMONIUM CHLORIDE+SODIUM CHLORIDE [Concomitant]
     Indication: COUGH
     Dosage: DOSE PER APPLICATION: 13.5MG+131.5MG+55MG
     Route: 065
     Dates: start: 20130724, end: 20130729
  87. ROPANOL [Concomitant]
     Indication: DEPRESSION
     Dosage: 20 MG
     Route: 065
     Dates: start: 20120426, end: 20120920
  88. ANTISNAKE VENOM [Concomitant]
     Indication: SNAKE BITE
     Route: 048
     Dates: end: 20111027
  89. AL(OH)3 [Concomitant]
     Indication: CHEST PAIN
  90. VITAMIN C [Concomitant]
     Active Substance: ASCORBIC ACID
     Indication: ROUTINE HEALTH MAINTENANCE
     Route: 065
     Dates: start: 20080522
  91. HYDROCORTISONE. [Concomitant]
     Active Substance: HYDROCORTISONE
     Indication: SNAKE BITE
     Dosage: FORMULATION: INJECTION
     Route: 065
     Dates: start: 20140317, end: 20140319
  92. CLOTRIMAZOLE. [Concomitant]
     Active Substance: CLOTRIMAZOLE
     Indication: VAGINAL DISCHARGE
     Route: 067
     Dates: start: 20140423, end: 20140428
  93. PANTOPRAZOLE [Concomitant]
     Active Substance: PANTOPRAZOLE SODIUM
     Route: 065
     Dates: start: 20140323, end: 20140331
  94. ECITALOPRAM [Concomitant]
     Indication: DEPRESSION
     Dosage: 10 MG
     Route: 065
     Dates: start: 20111101, end: 20120808
  95. ECITALOPRAM [Concomitant]
     Route: 065
     Dates: start: 20120315, end: 20120721
  96. LIQUID PARAFFIN + MAGNESIUM HYDROXIDE [Concomitant]
     Indication: FAECES HARD
     Dosage: DOSE PER APPLICATION: 3.75 ML+ 11.25 ML + /15ML
     Route: 065
     Dates: start: 20111111, end: 20111113
  97. AUTRIN [Concomitant]
     Indication: PARAESTHESIA
     Dosage: DOSE PER APPLICATION AND DAILY DOSE: 0.3 G, 1.5MG
     Route: 048
     Dates: end: 20110907
  98. ESOMEPRAZOLE [Concomitant]
     Active Substance: ESOMEPRAZOLE
     Indication: PROPHYLAXIS
     Dosage: 20 MG
     Route: 065
     Dates: start: 20120426, end: 20120502

REACTIONS (5)
  - Suicide attempt [Recovered/Resolved]
  - Acute kidney injury [Not Recovered/Not Resolved]
  - Hyperhomocysteinaemia [Not Recovered/Not Resolved]
  - Suicidal ideation [Recovered/Resolved]
  - Deep vein thrombosis [Not Recovered/Not Resolved]

NARRATIVE: CASE EVENT DATE: 20110822
